FAERS Safety Report 6015713-8 (Version None)
Quarter: 2008Q4

REPORT INFORMATION
  Report Type: 
  Country: None (occurrence: None)
  Receive Date: 20081219
  Receipt Date: 20081219
  Transmission Date: 20090506
  Serious: Yes (Life-Threatening, Hospitalization, Disabling)
  Sender: FDA-Public Use
  Company Number: None

PATIENT
  Age: 45 Year
  Sex: Male
  Weight: 95.2554 kg

DRUGS (2)
  1. BUPROPION SR 150MG TAB EON [Suspect]
     Indication: DEPRESSION
     Dosage: 1 TABLET AM DAILY PO
     Route: 048
     Dates: start: 20081111, end: 20081112
  2. BUPROPION SR 150MG TAB EON [Suspect]
     Dosage: 1 TABLET EVENING DAILY PO
     Route: 048
     Dates: start: 20081110, end: 20081111

REACTIONS (9)
  - CONVULSION [None]
  - ELECTROENCEPHALOGRAM ABNORMAL [None]
  - EXCORIATION [None]
  - HEADACHE [None]
  - LOSS OF CONSCIOUSNESS [None]
  - ROAD TRAFFIC ACCIDENT [None]
  - SKIN LACERATION [None]
  - TEMPORAL LOBE EPILEPSY [None]
  - VISUAL IMPAIRMENT [None]
